FAERS Safety Report 7448165-1 (Version None)
Quarter: 2011Q2

REPORT INFORMATION
  Report Type: 
  Country: None (occurrence: None)
  Receive Date: 20110429
  Receipt Date: 20100312
  Transmission Date: 20111010
  Serious: No
  Sender: FDA-Public Use
  Company Number: US-ASTRAZENECA-2006UW27285

PATIENT
  Age: 21353 Day
  Sex: Female

DRUGS (3)
  1. NEXIUM [Suspect]
     Indication: GASTROOESOPHAGEAL REFLUX DISEASE
     Route: 048
  2. EYE DROPS [Concomitant]
  3. XALATAN [Concomitant]
     Indication: GLAUCOMA
     Route: 047

REACTIONS (4)
  - DIARRHOEA [None]
  - GLAUCOMA [None]
  - DRUG DOSE OMISSION [None]
  - ABDOMINAL PAIN [None]
